FAERS Safety Report 25759003 (Version 1)
Quarter: 2025Q3

REPORT INFORMATION
  Report Type: Report from Study
  Country: CA (occurrence: CA)
  Receive Date: 20250904
  Receipt Date: 20250904
  Transmission Date: 20251021
  Serious: Yes (Other)
  Sender: SAMSUNG BIOEPIS
  Company Number: CA-SAMSUNG BIOEPIS-SB-2025-29524

PATIENT
  Age: 57 Year
  Sex: Male

DRUGS (1)
  1. ETANERCEPT [Suspect]
     Active Substance: ETANERCEPT
     Indication: Rheumatoid arthritis
     Dates: start: 20211003

REACTIONS (2)
  - Cerebrovascular accident [Recovered/Resolved]
  - Atrial septal defect [Unknown]

NARRATIVE: CASE EVENT DATE: 20250818
